FAERS Safety Report 14895195 (Version 1)
Quarter: 2018Q2

REPORT INFORMATION
  Report Type: Spontaneous
  Country: US (occurrence: US)
  Receive Date: 20180427
  Receipt Date: 20180427
  Transmission Date: 20180711
  Serious: Yes (Other)
  Sender: FDA-Public Use
  Company Number: None

PATIENT
  Age: 47 Year
  Sex: Male
  Weight: 83.25 kg

DRUGS (12)
  1. SIMVASTATIN. [Concomitant]
     Active Substance: SIMVASTATIN
  2. RAINBOW LIGHT MEN^S ONE [Concomitant]
  3. AMBIEN [Concomitant]
     Active Substance: ZOLPIDEM TARTRATE
  4. ASMANIX TWISTHALER [Concomitant]
  5. DHA FISH OIL [Concomitant]
  6. LORAZEPAM. [Concomitant]
     Active Substance: LORAZEPAM
  7. AVODART [Suspect]
     Active Substance: DUTASTERIDE
     Indication: PROSTATOMEGALY
     Dates: start: 20161101, end: 20170601
  8. CELEXA [Concomitant]
     Active Substance: CITALOPRAM HYDROBROMIDE
  9. TURMERIC [Concomitant]
     Active Substance: HERBALS\TURMERIC
  10. VIAGRA [Concomitant]
     Active Substance: SILDENAFIL CITRATE
  11. VIVISCAL [Concomitant]
  12. AVODART [Suspect]
     Active Substance: DUTASTERIDE
     Indication: ANDROGENETIC ALOPECIA
     Dates: start: 20161101, end: 20170601

REACTIONS (12)
  - Migraine [None]
  - Nervous system disorder [None]
  - Anxiety [None]
  - Cerebral disorder [None]
  - Balance disorder [None]
  - Cognitive disorder [None]
  - Muscle spasms [None]
  - Disturbance in attention [None]
  - Skin tightness [None]
  - Depression [None]
  - Memory impairment [None]
  - Aphasia [None]

NARRATIVE: CASE EVENT DATE: 20171112
